FAERS Safety Report 8365302-5 (Version None)
Quarter: 2012Q2

REPORT INFORMATION
  Report Type: 
  Country: None (occurrence: None)
  Receive Date: 20120516
  Receipt Date: 20120508
  Transmission Date: 20120825
  Serious: Yes (Death, Hospitalization)
  Sender: FDA-Public Use
  Company Number: US-MILLENNIUM PHARMACEUTICALS, INC.-2012-02178

PATIENT
  Sex: Female

DRUGS (18)
  1. ONDANSETRON [Concomitant]
     Dosage: 10 UNK, UNK
     Route: 042
     Dates: start: 20111101, end: 20111101
  2. MELPHALAN HYDROCHLORIDE [Suspect]
     Indication: MULTIPLE MYELOMA
     Dosage: 14 MG, CYCLIC
     Route: 048
     Dates: start: 20110503
  3. ASPIRIN [Concomitant]
     Indication: PRODUCT USED FOR UNKNOWN INDICATION
     Dosage: 81 MG, UNK
     Route: 048
  4. LISINOPRIL [Concomitant]
     Indication: PRODUCT USED FOR UNKNOWN INDICATION
     Dosage: 5 MG, UNK
     Route: 048
  5. FERROUS SULFATE TAB [Concomitant]
     Indication: PRODUCT USED FOR UNKNOWN INDICATION
     Dosage: 325 MG, UNK
  6. VITAMIN D [Concomitant]
     Indication: PRODUCT USED FOR UNKNOWN INDICATION
  7. OXYCODONE HCL [Concomitant]
     Indication: PRODUCT USED FOR UNKNOWN INDICATION
     Dosage: 10 MG, BID
     Route: 048
     Dates: start: 20111025
  8. VELCADE [Suspect]
     Indication: MULTIPLE MYELOMA
     Dosage: 2 MG, 1/WEEK
     Route: 042
     Dates: start: 20110503, end: 20111029
  9. VELCADE [Suspect]
     Dosage: 2 MG, UNK
     Route: 040
     Dates: start: 20111101, end: 20111101
  10. DEXAMETHASONE [Concomitant]
     Dosage: 20 UNK, UNK
     Route: 042
     Dates: start: 20111101, end: 20111101
  11. CALCIUM CARBONATE/VITAMIN D3 [Concomitant]
     Indication: PRODUCT USED FOR UNKNOWN INDICATION
     Dosage: 600 MG, BID
     Route: 048
  12. ZINC SULFATE [Concomitant]
     Indication: PRODUCT USED FOR UNKNOWN INDICATION
     Dosage: 50 MG, UNK
     Route: 048
  13. MELPHALAN HYDROCHLORIDE [Suspect]
     Dosage: 10 UNK, UNK
     Route: 048
     Dates: start: 20110802, end: 20111029
  14. ACETAMINOPHEN [Concomitant]
     Indication: PRODUCT USED FOR UNKNOWN INDICATION
     Dosage: 500 MG, PRN
     Route: 048
  15. PANTOPRAZOLE [Concomitant]
     Indication: PRODUCT USED FOR UNKNOWN INDICATION
     Dosage: 40 MG, UNK
     Route: 048
  16. DEXAMETHASONE [Concomitant]
     Indication: PRODUCT USED FOR UNKNOWN INDICATION
     Dosage: 20 MG, UNK
     Route: 042
     Dates: start: 20111025, end: 20111025
  17. ONDANSETRON [Concomitant]
     Indication: PRODUCT USED FOR UNKNOWN INDICATION
     Dosage: 10 MG, UNK
     Route: 042
     Dates: start: 20111025, end: 20111025
  18. LEVOTHYROXINE SODIUM [Concomitant]
     Indication: PRODUCT USED FOR UNKNOWN INDICATION
     Dosage: 50 UG, UNK
     Route: 048

REACTIONS (3)
  - GASTROINTESTINAL PERFORATION [None]
  - FAILURE TO THRIVE [None]
  - DEHYDRATION [None]
